FAERS Safety Report 10043627 (Version 1)
Quarter: 2014Q1

REPORT INFORMATION
  Report Type: Spontaneous
  Country: US (occurrence: US)
  Receive Date: 20140328
  Receipt Date: 20140328
  Transmission Date: 20141002
  Serious: Yes (Other)
  Sender: FDA-Public Use
  Company Number: US-GE HEALTHCARE MEDICAL DIAGNOSTICS-OSCN-PR-1011S-0275

PATIENT
  Sex: Male

DRUGS (5)
  1. OMNISCAN [Suspect]
     Indication: CEREBRAL INFARCTION
     Route: 042
     Dates: start: 20060616, end: 20060616
  2. OMNISCAN [Suspect]
     Indication: PRODUCT USED FOR UNKNOWN INDICATION
     Route: 042
     Dates: start: 20060616, end: 20060616
  3. OMNISCAN [Suspect]
     Indication: CEREBRAL INFARCTION
     Route: 042
     Dates: start: 20060617, end: 20060617
  4. OMNISCAN [Suspect]
     Indication: INFARCTION
     Route: 042
     Dates: start: 20060618, end: 20060618
  5. OMNISCAN [Suspect]
     Indication: PRODUCT USED FOR UNKNOWN INDICATION
     Route: 042
     Dates: start: 20061024, end: 20061024

REACTIONS (1)
  - Nephrogenic systemic fibrosis [Not Recovered/Not Resolved]
